FAERS Safety Report 4635837-7 (Version None)
Quarter: 2005Q2

REPORT INFORMATION
  Report Type: 
  Country: None (occurrence: None)
  Receive Date: 20050413
  Receipt Date: 20050325
  Transmission Date: 20051028
  Serious: No
  Sender: FDA-Public Use
  Company Number: USA050394170

PATIENT
  Age: 45 Year
  Sex: Female

DRUGS (5)
  1. ZYPREXA [Suspect]
     Indication: MOOD SWINGS
     Dosage: 10 MG
     Dates: start: 20030101, end: 20040101
  2. ABILIFY (ARIPRAZOLE) [Concomitant]
  3. LITHIUM CARBONATE [Concomitant]
  4. ACETAMINOPHEN [Concomitant]
  5. KLONOPIN [Concomitant]

REACTIONS (11)
  - AMENORRHOEA [None]
  - BALANCE DISORDER [None]
  - CHAPPED LIPS [None]
  - DIZZINESS [None]
  - EPISTAXIS [None]
  - MUSCLE SPASMS [None]
  - MUSCULOSKELETAL STIFFNESS [None]
  - PARAESTHESIA [None]
  - STOMACH DISCOMFORT [None]
  - THIRST [None]
  - WEIGHT INCREASED [None]
